FAERS Safety Report 19358484 (Version 3)
Quarter: 2021Q4

REPORT INFORMATION
  Report Type: Spontaneous
  Country: JP (occurrence: JP)
  Receive Date: 20210531
  Receipt Date: 20211119
  Transmission Date: 20220303
  Serious: Yes (Death, Hospitalization, Other)
  Sender: FDA-Public Use
  Company Number: JP-MSD-2105JPN001861J

PATIENT
  Age: 70 Year
  Sex: Male

DRUGS (2)
  1. KEYTRUDA [Suspect]
     Active Substance: PEMBROLIZUMAB
     Indication: Non-small cell lung cancer stage IV
     Dosage: 200 MILLIGRAM, Q3W
     Route: 041
     Dates: start: 20210330, end: 20210330
  2. PEMETREXED DISODIUM [Concomitant]
     Active Substance: PEMETREXED DISODIUM
     Indication: Non-small cell lung cancer stage IV
     Dosage: 500 MILLIGRAM/SQ. METER, Q3W
     Route: 041
     Dates: start: 20210330, end: 2021

REACTIONS (3)
  - Malignant neoplasm progression [Fatal]
  - Sepsis [Unknown]
  - Hypopituitarism [Unknown]

NARRATIVE: CASE EVENT DATE: 20210408
